FAERS Safety Report 7658483-X (Version None)
Quarter: 2011Q3

REPORT INFORMATION
  Report Type: 
  Country: None (occurrence: None)
  Receive Date: 20110805
  Receipt Date: 20110801
  Transmission Date: 20111222
  Serious: Yes (Other)
  Sender: FDA-Public Use
  Company Number: US-BAYER-2011-067725

PATIENT
  Sex: Female

DRUGS (1)
  1. YAZ [Suspect]
     Dosage: UNK
     Dates: start: 20070301, end: 20070501

REACTIONS (11)
  - NECK PAIN [None]
  - CEREBRAL THROMBOSIS [None]
  - NAUSEA [None]
  - INJURY [None]
  - EMOTIONAL DISTRESS [None]
  - VISUAL IMPAIRMENT [None]
  - ANXIETY [None]
  - GENERAL PHYSICAL HEALTH DETERIORATION [None]
  - PAIN [None]
  - MIGRAINE [None]
  - VERTIGO [None]
